FAERS Safety Report 8185714-2 (Version None)
Quarter: 2012Q1

REPORT INFORMATION
  Report Type: 
  Country: None (occurrence: None)
  Receive Date: 20120305
  Receipt Date: 20120228
  Transmission Date: 20120608
  Serious: Yes (Death)
  Sender: FDA-Public Use
  Company Number: US-CELGENEUS-163-21880-12012912

PATIENT
  Sex: Female

DRUGS (10)
  1. REVLIMID [Suspect]
     Indication: MULTIPLE MYELOMA
     Dosage: 15 MILLIGRAM
     Route: 048
     Dates: start: 20110516
  2. LOPRESSOR [Concomitant]
     Route: 065
  3. NOVOLIN 70/30 [Concomitant]
     Route: 065
  4. REVLIMID [Suspect]
     Dosage: 15 MILLIGRAM
     Route: 048
     Dates: start: 20120124
  5. ALBUTEROL [Concomitant]
     Route: 065
  6. PROTONIX [Concomitant]
     Route: 065
  7. MS CONTIN [Concomitant]
     Route: 065
  8. COLACE [Concomitant]
     Route: 065
  9. COUMADIN [Concomitant]
     Route: 065
  10. DECADRON [Concomitant]
     Route: 065

REACTIONS (2)
  - MULTIPLE MYELOMA [None]
  - DEATH [None]
